FAERS Safety Report 6896272-4 (Version None)
Quarter: 2010Q3

REPORT INFORMATION
  Report Type: 
  Country: None (occurrence: None)
  Receive Date: 20100802
  Receipt Date: 20100723
  Transmission Date: 20110219
  Serious: Yes (Hospitalization)
  Sender: FDA-Public Use
  Company Number: B0666844A

PATIENT
  Sex: Female

DRUGS (5)
  1. DEROXAT [Suspect]
     Dosage: 20MG PER DAY
     Route: 048
  2. PNEUMOREL [Suspect]
     Dosage: 80MG THREE TIMES PER DAY
     Route: 048
     Dates: start: 20100222, end: 20100227
  3. RHINADVIL [Suspect]
     Route: 048
     Dates: start: 20100222, end: 20100224
  4. ISOPTIN [Concomitant]
     Dosage: 120MG PER DAY
     Route: 048
  5. PIASCLEDINE [Concomitant]
     Route: 048

REACTIONS (6)
  - CONFUSIONAL STATE [None]
  - DRUG INTERACTION [None]
  - DYSPNOEA [None]
  - MEMORY IMPAIRMENT [None]
  - SOMNOLENCE [None]
  - TACHYCARDIA [None]
